FAERS Safety Report 23712138 (Version 7)
Quarter: 2024Q3

REPORT INFORMATION
  Report Type: Spontaneous
  Country: AR (occurrence: AR)
  Receive Date: 20240405
  Receipt Date: 20240807
  Transmission Date: 20241017
  Serious: No
  Sender: PFIZER
  Company Number: AR-PFIZER INC-202400076389

PATIENT
  Age: 11 Year
  Sex: Female

DRUGS (2)
  1. GENOTROPIN [Suspect]
     Active Substance: SOMATROPIN
     Dosage: 1.4 MG, 6X PER WEEK
     Dates: start: 20220102
  2. GENOTROPIN [Suspect]
     Active Substance: SOMATROPIN
     Dosage: 1.4 MG, 6X PER WEEK
     Dates: start: 20240327

REACTIONS (4)
  - Drug dose omission by device [Unknown]
  - Device end of service [Unknown]
  - Device information output issue [Unknown]
  - Expired device used [Unknown]

NARRATIVE: CASE EVENT DATE: 20240327
